FAERS Safety Report 7469110-9 (Version None)
Quarter: 2011Q2

REPORT INFORMATION
  Report Type: 
  Country: None (occurrence: None)
  Receive Date: 20110510
  Receipt Date: 20110427
  Transmission Date: 20111010
  Serious: Yes (Hospitalization)
  Sender: FDA-Public Use
  Company Number: US-ELI_LILLY_AND_COMPANY-US201102000882

PATIENT
  Sex: Female

DRUGS (2)
  1. ZYPREXA [Suspect]
     Dosage: UNK
     Dates: start: 20100101, end: 20100701
  2. ZYPREXA [Suspect]
     Indication: BIPOLAR DISORDER
     Dosage: UNK
     Dates: end: 20100601

REACTIONS (8)
  - SUICIDE ATTEMPT [None]
  - LACERATION [None]
  - HAEMORRHAGE [None]
  - INTENTIONAL DRUG MISUSE [None]
  - TREMOR [None]
  - ALTERED STATE OF CONSCIOUSNESS [None]
  - AMNESIA [None]
  - PSYCHOTIC DISORDER [None]
